FAERS Safety Report 25061123 (Version 1)
Quarter: 2025Q1

REPORT INFORMATION
  Report Type: Spontaneous
  Country: US (occurrence: US)
  Receive Date: 20250310
  Receipt Date: 20250310
  Transmission Date: 20250409
  Serious: Yes (Other)
  Sender: BRISTOL-MYERS SQUIBB COMPANY
  Company Number: US-BRISTOL-MYERS SQUIBB COMPANY-2025-032162

PATIENT
  Age: 74 Year
  Sex: Female

DRUGS (11)
  1. REVLIMID [Suspect]
     Active Substance: LENALIDOMIDE
     Indication: Plasma cell myeloma
     Dosage: QDAY FOR 14 DAYS AND 7 DAYS OFF
     Route: 048
     Dates: start: 20250211
  2. ASPIRIN [Concomitant]
     Active Substance: ASPIRIN
  3. ACYCLOVIR [Concomitant]
     Active Substance: ACYCLOVIR
  4. LOVASTATIN [Concomitant]
     Active Substance: LOVASTATIN
  5. CALCIUM [Concomitant]
     Active Substance: CALCIUM
  6. ATENOLOL [Concomitant]
     Active Substance: ATENOLOL
  7. AMLODIPINE [Concomitant]
     Active Substance: AMLODIPINE BESYLATE
  8. APAP [Concomitant]
     Active Substance: ACETAMINOPHEN
  9. DARZALEX [Concomitant]
     Active Substance: DARATUMUMAB
     Indication: Plasma cell myeloma
  10. VELCADE [Concomitant]
     Active Substance: BORTEZOMIB
     Indication: Plasma cell myeloma
  11. DEXAMETHASONE [Concomitant]
     Active Substance: DEXAMETHASONE
     Indication: Plasma cell myeloma

REACTIONS (3)
  - Platelet count decreased [Unknown]
  - Red blood cell count decreased [Unknown]
  - Off label use [Unknown]
